FAERS Safety Report 4879843-6 (Version None)
Quarter: 2006Q1

REPORT INFORMATION
  Report Type: 
  Country: None (occurrence: None)
  Receive Date: 20060113
  Receipt Date: 20051212
  Transmission Date: 20060701
  Serious: Yes (Life-Threatening, Hospitalization)
  Sender: FDA-Public Use
  Company Number: 2005PK02454

PATIENT
  Age: 19422 Day
  Sex: Female
  Weight: 55 kg

DRUGS (2)
  1. SEROQUEL [Suspect]
     Indication: MANIA
     Route: 048
     Dates: start: 20050921, end: 20051008
  2. DIAZEPAM [Concomitant]
     Route: 048
     Dates: start: 20050921, end: 20051013

REACTIONS (3)
  - ILEUS [None]
  - MEGACOLON [None]
  - PSYCHOTIC DISORDER [None]
